FAERS Safety Report 21451936 (Version 2)
Quarter: 2022Q4

REPORT INFORMATION
  Report Type: Report from Study
  Country: DE (occurrence: DE)
  Receive Date: 20221013
  Receipt Date: 20221019
  Transmission Date: 20230112
  Serious: Yes (Hospitalization, Other)
  Sender: FDA-Public Use
  Company Number: DE-BRISTOL-MYERS SQUIBB COMPANY-2022-111486

PATIENT
  Age: 41 Year
  Sex: Male

DRUGS (12)
  1. NIVOLUMAB [Suspect]
     Active Substance: NIVOLUMAB
     Indication: Rhabdomyosarcoma
     Route: 042
     Dates: start: 20220909, end: 20220909
  2. CARBOPLATIN [Suspect]
     Active Substance: CARBOPLATIN
     Indication: Rhabdomyosarcoma
     Route: 042
     Dates: start: 20220630, end: 20220703
  3. INVESTIGATIONAL PRODUCT [Suspect]
     Active Substance: INVESTIGATIONAL PRODUCT
     Indication: Rhabdomyosarcoma
     Dosage: DOSE LEVEL 4 (1200 X 10^6 CELLS/M?)
     Route: 041
     Dates: start: 20220825, end: 20220825
  4. FLUDARABINE [Suspect]
     Active Substance: FLUDARABINE PHOSPHATE
     Indication: Rhabdomyosarcoma
     Dosage: [D1] 30 MG/M2 EVERY 1 D
     Route: 041
     Dates: start: 20220819, end: 20220822
  5. CYCLOPHOSPHAMIDE [Suspect]
     Active Substance: CYCLOPHOSPHAMIDE
     Indication: Rhabdomyosarcoma
     Dosage: [D1] 500 MG/M2 EVERY 1 D
     Route: 041
     Dates: start: 20220819, end: 20220822
  6. ALDESLEUKIN [Suspect]
     Active Substance: ALDESLEUKIN
     Indication: Rhabdomyosarcoma
     Dosage: [D1] 1 10*6.[IU]
     Route: 058
     Dates: start: 20220826, end: 20220909
  7. IRINOTECAN [Suspect]
     Active Substance: IRINOTECAN
     Indication: Product used for unknown indication
     Route: 042
     Dates: start: 20220922, end: 20220922
  8. TEMOZOLOMIDE [Suspect]
     Active Substance: TEMOZOLOMIDE
     Indication: Product used for unknown indication
     Route: 048
     Dates: start: 20220922, end: 20220926
  9. TOPOTECAN [Suspect]
     Active Substance: TOPOTECAN HYDROCHLORIDE
     Indication: Rhabdomyosarcoma
     Route: 042
     Dates: start: 20220630, end: 20220703
  10. COTRIM [Concomitant]
     Active Substance: SULFAMETHOXAZOLE\TRIMETHOPRIM
     Indication: Prophylaxis
     Route: 048
  11. ACYCLOVIR [Concomitant]
     Active Substance: ACYCLOVIR
     Indication: Prophylaxis
     Route: 048
     Dates: start: 20220818
  12. METAMIZOLE [Concomitant]
     Active Substance: METAMIZOLE
     Indication: Product used for unknown indication
     Route: 065
     Dates: start: 20220909

REACTIONS (2)
  - Anaemia [Not Recovered/Not Resolved]
  - Platelet count decreased [Not Recovered/Not Resolved]

NARRATIVE: CASE EVENT DATE: 20220914
